APPROVED DRUG PRODUCT: LAMIVUDINE
Active Ingredient: LAMIVUDINE
Strength: 10MG/ML
Dosage Form/Route: SOLUTION;ORAL
Application: A091475 | Product #001 | TE Code: AA
Applicant: HETERO LABS LTD UNIT III
Approved: Oct 6, 2023 | RLD: No | RS: No | Type: RX